FAERS Safety Report 6785777-2 (Version None)
Quarter: 2010Q2

REPORT INFORMATION
  Report Type: 
  Country: None (occurrence: None)
  Receive Date: 20100622
  Receipt Date: 20100622
  Transmission Date: 20101027
  Serious: Yes (Other)
  Sender: FDA-Public Use
  Company Number: None

PATIENT
  Age: 36 Year
  Sex: Female
  Weight: 55.7924 kg

DRUGS (1)
  1. MINOCYCLINE HCL [Suspect]
     Indication: STAPHYLOCOCCAL SKIN INFECTION
     Dosage: 100MG/1PILL 2X/DAILY ORAL
     Route: 048
     Dates: start: 20100527, end: 20100530

REACTIONS (8)
  - ABASIA [None]
  - BALANCE DISORDER [None]
  - DIZZINESS [None]
  - FEELING ABNORMAL [None]
  - NAUSEA [None]
  - VISION BLURRED [None]
  - VISUAL IMPAIRMENT [None]
  - VOMITING [None]
